FAERS Safety Report 5571095-7 (Version None)
Quarter: 2007Q4

REPORT INFORMATION
  Report Type: 
  Country: None (occurrence: None)
  Receive Date: 20071221
  Receipt Date: 20071218
  Transmission Date: 20080405
  Serious: No
  Sender: FDA-Public Use
  Company Number: CA-ASTRAZENECA-2007UW25471

PATIENT
  Age: 53 Year
  Sex: Male

DRUGS (2)
  1. SEROQUEL [Suspect]
     Indication: DEPRESSION
     Route: 048
     Dates: start: 20070901, end: 20071025
  2. CITALOPRAM [Concomitant]
     Indication: DEPRESSION
     Dates: start: 20070612

REACTIONS (4)
  - ASTHENOPIA [None]
  - PHOTOPSIA [None]
  - VITREOUS DETACHMENT [None]
  - VITREOUS FLOATERS [None]
